FAERS Safety Report 18311843 (Version 1)
Quarter: 2020Q3

REPORT INFORMATION
  Report Type: Spontaneous
  Country: US (occurrence: US)
  Receive Date: 20200925
  Receipt Date: 20200925
  Transmission Date: 20201103
  Serious: Yes (Hospitalization, Other)
  Sender: FDA-Public Use
  Company Number: US-TORRENT-00010429

PATIENT
  Age: 82 Year
  Sex: Male

DRUGS (4)
  1. LOSARTAN. [Suspect]
     Active Substance: LOSARTAN
     Indication: HYPERTENSION
     Dosage: UNKNOWN
  2. METHOTREXATE. [Concomitant]
     Active Substance: METHOTREXATE
     Indication: DISEASE PROGRESSION
     Dosage: 0.20 EQ/KG, 765IGF?MTX , 6 CYCLE
     Route: 041
  3. DEXTROSE. [Concomitant]
     Active Substance: DEXTROSE
     Indication: DISEASE PROGRESSION
     Dosage: 90?MIN IV INFUSION IN 250 ML OF 5% DEXTROSE ON DAYS 1, 8, AND 15 OF A FOUR?WEEK TREATMENT CYCLE
     Route: 041
     Dates: start: 201802, end: 2018
  4. INSULIN?LIKE GROWTH FACTOR I [Concomitant]
     Indication: MYELODYSPLASTIC SYNDROME
     Dosage: 0.20 EQ/KG, 765IGF?MTX, 6 CYCLE
     Route: 041
     Dates: start: 201806, end: 2018

REACTIONS (2)
  - Syncope [Unknown]
  - Orthostatic hypotension [Unknown]

NARRATIVE: CASE EVENT DATE: 2018
